FAERS Safety Report 9974117 (Version 1)
Quarter: 2014Q1

REPORT INFORMATION
  Report Type: Report from Study
  Country: US (occurrence: US)
  Receive Date: 20140306
  Receipt Date: 20140306
  Transmission Date: 20141002
  Serious: No
  Sender: FDA-Public Use
  Company Number: US-ABBVIE-13P-163-1158773-00

PATIENT
  Age: 51 Year
  Sex: Female

DRUGS (7)
  1. HUMIRA [Suspect]
     Indication: RHEUMATOID ARTHRITIS
     Dosage: ON TUESDAY
     Dates: start: 20131001
  2. SULFASALAZINE [Concomitant]
     Indication: PRODUCT USED FOR UNKNOWN INDICATION
  3. BLOOD PRESSURE MEDICATION [Concomitant]
     Indication: BLOOD PRESSURE
     Dosage: 6.5/25 MG
  4. FLUOXETINE [Concomitant]
     Indication: DEPRESSION
     Dosage: 20 MG EVERY DAY
  5. TRAMADOL [Concomitant]
     Indication: BACK PAIN
  6. GABAPENTIN [Concomitant]
     Indication: PAIN
     Dosage: 300 MG FOUR TIMES A DAY AS NEEDED
  7. XANAX [Concomitant]
     Indication: ANXIETY

REACTIONS (5)
  - Incorrect dose administered [Recovered/Resolved]
  - Incorrect dose administered [Recovered/Resolved]
  - Injection site pain [Recovered/Resolved]
  - Injection site pain [Recovered/Resolved]
  - Injection site pain [Recovered/Resolved]
